FAERS Safety Report 16084219 (Version 2)
Quarter: 2019Q1

REPORT INFORMATION
  Report Type: Spontaneous
  Country: US (occurrence: US)
  Receive Date: 20190318
  Receipt Date: 20190325
  Transmission Date: 20190418
  Serious: No
  Sender: FDA-Public Use
  Company Number: US-PFIZER INC-2018017757

PATIENT
  Age: 63 Year
  Sex: Female
  Weight: 54.88 kg

DRUGS (2)
  1. FLECTOR [Suspect]
     Active Substance: DICLOFENAC EPOLAMINE
     Indication: RHEUMATOID ARTHRITIS
     Dosage: UNK, 2X/DAY (EVERY 12 HOURS)
  2. FLECTOR [Suspect]
     Active Substance: DICLOFENAC EPOLAMINE
     Indication: ARTHRALGIA
     Dosage: UNK

REACTIONS (4)
  - Product adhesion issue [Unknown]
  - Poor quality product administered [Unknown]
  - Asthenia [Unknown]
  - Product use in unapproved indication [Unknown]
